FAERS Safety Report 25889903 (Version 1)
Quarter: 2025Q4

REPORT INFORMATION
  Report Type: Spontaneous
  Country: CN (occurrence: CN)
  Receive Date: 20251007
  Receipt Date: 20251007
  Transmission Date: 20260117
  Serious: Yes (Other)
  Sender: GE HEALTHCARE
  Company Number: None

PATIENT
  Age: 12 Year
  Sex: Female
  Weight: 42 kg

DRUGS (1)
  1. VISIPAQUE [Suspect]
     Active Substance: IODIXANOL
     Indication: Computerised tomogram abdomen
     Dosage: 100 ML, TOTAL
     Route: 042
     Dates: start: 20250919, end: 20250919

REACTIONS (6)
  - Tonsillar hypertrophy [Recovering/Resolving]
  - Rash maculo-papular [Recovering/Resolving]
  - Rash pruritic [Recovering/Resolving]
  - Dermatitis allergic [Recovering/Resolving]
  - Oropharyngeal erythema [Recovering/Resolving]
  - Oropharyngeal pain [Recovering/Resolving]

NARRATIVE: CASE EVENT DATE: 20250920
